FAERS Safety Report 10370491 (Version 3)
Quarter: 2014Q4

REPORT INFORMATION
  Report Type: Spontaneous
  Country: FR (occurrence: None)
  Receive Date: 20140731
  Receipt Date: 20141010
  Transmission Date: 20150528
  Serious: Yes (Life-Threatening, Hospitalization)
  Sender: FDA-Public Use
  Company Number: GAM-258-14-FR

PATIENT
  Age: 59 Year
  Sex: Male

DRUGS (5)
  1. OCTAGAM IMMUNE GLOBULIN (HUMAN) [Suspect]
     Active Substance: HUMAN IMMUNOGLOBULIN G
     Indication: ENCEPHALITIS
     Dosage: 40 G (1X 1/TOTAL)
     Route: 042
     Dates: start: 20140619, end: 20140619
  2. PREDNISONE. [Concomitant]
     Active Substance: PREDNISONE
  3. TEGELINE [Suspect]
     Active Substance: HUMAN IMMUNOGLOBULIN G
     Indication: ENCEPHALITIS
     Dosage: 100 G (1X 1/TOTAL)
     Route: 042
     Dates: start: 20140616, end: 20140618
  4. BISOPROLOL [Concomitant]
     Active Substance: BISOPROLOL
  5. ZOPICLONE [Concomitant]
     Active Substance: ZOPICLONE

REACTIONS (1)
  - Pulmonary embolism [None]

NARRATIVE: CASE EVENT DATE: 20140620
